FAERS Safety Report 6187803-0 (Version None)
Quarter: 2009Q2

REPORT INFORMATION
  Report Type: 
  Country: None (occurrence: None)
  Receive Date: 20090513
  Receipt Date: 20090505
  Transmission Date: 20091009
  Serious: Yes (Other)
  Sender: FDA-Public Use
  Company Number: US-ELI_LILLY_AND_COMPANY-US200905000909

PATIENT
  Age: 82 Year
  Sex: Female

DRUGS (1)
  1. HUMALOG [Suspect]
     Dosage: 5 U, UNK

REACTIONS (2)
  - FALL [None]
  - HIP FRACTURE [None]
